FAERS Safety Report 4622361-0 (Version None)
Quarter: 2005Q1

REPORT INFORMATION
  Report Type: 
  Country: None (occurrence: None)
  Receive Date: 20050325
  Receipt Date: 20050325
  Transmission Date: 20050727
  Serious: Yes (Other)
  Sender: FDA-Public Use
  Company Number: None

PATIENT
  Sex: Male
  Weight: 101.7 kg

DRUGS (3)
  1. CYTARABINE [Suspect]
     Dosage: 100 MG/M2/DAY CIV ON DAYS 1-7
     Dates: start: 20050319
  2. DAUNOMYCIN [Suspect]
     Dosage: 90 MG/M2 IV OVER 5-10 MIN ON DAYS 1, 2, AND 3.
  3. ETOPOSIDE [Suspect]
     Dosage: 100 MG/M2 IV OVER 2 HOURS ON DAYS 1, 2 AND 3.

REACTIONS (4)
  - CHILLS [None]
  - LUNG INFILTRATION [None]
  - PYREXIA [None]
  - RESPIRATORY FAILURE [None]
